FAERS Safety Report 26154754 (Version 2)
Quarter: 2025Q4

REPORT INFORMATION
  Report Type: Spontaneous
  Country: US (occurrence: US)
  Receive Date: 20251215
  Receipt Date: 20251224
  Transmission Date: 20260118
  Serious: No
  Sender: PIRAMAL
  Company Number: US-PCCINC-2025-PPL-000695

PATIENT

DRUGS (2)
  1. GABLOFEN [Suspect]
     Active Substance: BACLOFEN
     Indication: Product used for unknown indication
     Dosage: 1300 MICROGRAM, QD
     Route: 037
  2. BACLOFEN [Suspect]
     Active Substance: BACLOFEN
     Indication: Product used for unknown indication
     Dosage: 10 MILLIGRAM
     Route: 048
     Dates: start: 20251118

REACTIONS (3)
  - Overdose [Not Recovered/Not Resolved]
  - Lethargy [Not Recovered/Not Resolved]
  - Confusional state [Not Recovered/Not Resolved]
